FAERS Safety Report 18587958 (Version 1)
Quarter: 2020Q4

REPORT INFORMATION
  Report Type: Spontaneous
  Country: BR (occurrence: BR)
  Receive Date: 20201207
  Receipt Date: 20201207
  Transmission Date: 20210114
  Serious: Yes (Other)
  Sender: FDA-Public Use
  Company Number: BR-ASTRAZENECA-2020SE77531

PATIENT
  Age: 12599 Day
  Sex: Female

DRUGS (2)
  1. SYMBICORT [Suspect]
     Active Substance: BUDESONIDE\FORMOTEROL FUMARATE DIHYDRATE
     Indication: ASTHMA
     Dosage: 160/4.5 MCG 2 JETS IN THE MORNING AND 2 JETS AT NIGHT. ONE JET IN BETWEEN IF NECESSARY
     Route: 055
     Dates: start: 20200611
  2. ROACUTAN [Concomitant]
     Active Substance: ISOTRETINOIN

REACTIONS (2)
  - Asthmatic crisis [Not Recovered/Not Resolved]
  - Product administration error [Unknown]

NARRATIVE: CASE EVENT DATE: 20200611
